FAERS Safety Report 11527838 (Version 2)
Quarter: 2015Q4

REPORT INFORMATION
  Report Type: Spontaneous
  Country: IT (occurrence: IT)
  Receive Date: 20150920
  Receipt Date: 20151007
  Transmission Date: 20160304
  Serious: Yes (Death)
  Sender: FDA-Public Use
  Company Number: IT-TEVA-594565ISR

PATIENT
  Age: 55 Year
  Sex: Female

DRUGS (3)
  1. CISPLATIN. [Suspect]
     Active Substance: CISPLATIN
     Indication: OVARIAN CANCER
     Dosage: CYCLIC (DAILY FOR 5 CONSECUTIVE DAYS, EVERY 21 DAYS)
     Route: 042
  2. VINBLASTINE [Suspect]
     Active Substance: VINBLASTINE
     Indication: OVARIAN CANCER
     Dosage: CYCLIC (DAYS 1 AND 2, EVERY 21 DAYS)
     Route: 042
  3. BLEOMYCIN [Suspect]
     Active Substance: BLEOMYCIN SULFATE
     Indication: OVARIAN CANCER
     Dosage: CYCLIC (DAYS 2, 9, 16, EVERY 21 DAYS))?
     Route: 042

REACTIONS (6)
  - Sepsis [Fatal]
  - Vomiting [Unknown]
  - Leukopenia [Fatal]
  - Skin hyperpigmentation [Unknown]
  - Nausea [Unknown]
  - Alopecia [Unknown]
